FAERS Safety Report 7760347-8 (Version None)
Quarter: 2011Q3

REPORT INFORMATION
  Report Type: 
  Country: None (occurrence: None)
  Receive Date: 20110919
  Receipt Date: 20110908
  Transmission Date: 20111222
  Serious: Yes (Hospitalization)
  Sender: FDA-Public Use
  Company Number: US-BAYER-2011-007438

PATIENT
  Age: 18 Year
  Sex: Female
  Weight: 169.84 kg

DRUGS (3)
  1. YASMIN [Suspect]
     Dosage: UNK
     Dates: start: 20060901, end: 20070201
  2. ZYRTEC [Concomitant]
     Indication: HYPERSENSITIVITY
     Dosage: UNK
     Dates: start: 20060101
  3. SINGULAIR [Concomitant]
     Indication: HYPERSENSITIVITY
     Dosage: UNK
     Dates: start: 20060101

REACTIONS (2)
  - PAIN [None]
  - PULMONARY EMBOLISM [None]
